FAERS Safety Report 4877825-1 (Version None)
Quarter: 2006Q1

REPORT INFORMATION
  Report Type: 
  Country: None (occurrence: None)
  Receive Date: 20060109
  Receipt Date: 20051221
  Transmission Date: 20060701
  Serious: Yes (Other)
  Sender: FDA-Public Use
  Company Number: CIP05002984

PATIENT
  Age: 54 Year
  Sex: Female

DRUGS (2)
  1. ACTONEL [Suspect]
     Indication: OSTEOPOROSIS
     Dosage: 35 MG, ONE TIME, ORAL
     Route: 048
     Dates: start: 20050201, end: 20050201
  2. ACTONEL [Suspect]
     Indication: OSTEOPOROSIS
     Dosage: 35 MG, ONE TIME, ORAL
     Route: 048
     Dates: start: 20050601, end: 20050601

REACTIONS (5)
  - ARTERIAL OCCLUSIVE DISEASE [None]
  - ARTHRALGIA [None]
  - CHEST PAIN [None]
  - HYPERHIDROSIS [None]
  - PYREXIA [None]
